FAERS Safety Report 5765034-3 (Version None)
Quarter: 2008Q2

REPORT INFORMATION
  Report Type: 
  Country: None (occurrence: None)
  Receive Date: 20080611
  Receipt Date: 20080604
  Transmission Date: 20081010
  Serious: Yes (Other)
  Sender: FDA-Public Use
  Company Number: CA-ASTRAZENECA-2008UW06692

PATIENT
  Age: 61 Year
  Sex: Male

DRUGS (8)
  1. CRESTOR [Suspect]
     Indication: HYPERLIPIDAEMIA
     Route: 048
  2. CRESTOR [Suspect]
     Route: 048
  3. TENOFOVIR [Concomitant]
     Indication: HIV TEST POSITIVE
     Route: 048
     Dates: start: 20050601
  4. KALETRA [Concomitant]
     Indication: HIV TEST POSITIVE
     Route: 048
     Dates: start: 20030501
  5. LAMIVUDINE [Concomitant]
     Indication: HIV TEST POSITIVE
     Route: 048
     Dates: start: 20050601
  6. ATENOLOL [Concomitant]
     Indication: HYPERTENSION
     Route: 048
  7. AGGRENOX [Concomitant]
  8. CITALOPRAM HYDROBROMIDE [Concomitant]
     Indication: DEPRESSED MOOD
     Route: 048

REACTIONS (3)
  - GINGIVITIS [None]
  - MALAISE [None]
  - RASH GENERALISED [None]
